FAERS Safety Report 5107972-0 (Version None)
Quarter: 2006Q3

REPORT INFORMATION
  Report Type: 
  Country: None (occurrence: None)
  Receive Date: 20060919
  Receipt Date: 20060911
  Transmission Date: 20061208
  Serious: Yes (Hospitalization, Other)
  Sender: FDA-Public Use
  Company Number: DK-JNJFOC-20060902740

PATIENT
  Age: 48 Year
  Sex: Female
  Weight: 77 kg

DRUGS (3)
  1. REMICADE [Suspect]
     Indication: COLITIS ULCERATIVE
     Route: 042
  2. PREDNISOLONE [Concomitant]
     Route: 065
  3. ASACOL [Concomitant]
     Route: 065

REACTIONS (1)
  - MOUTH ULCERATION [None]
